FAERS Safety Report 6092584-5 (Version None)
Quarter: 2009Q1

REPORT INFORMATION
  Report Type: 
  Country: None (occurrence: None)
  Receive Date: 20090225
  Receipt Date: 20080305
  Transmission Date: 20090719
  Serious: Yes (Other)
  Sender: FDA-Public Use
  Company Number: US-BRISTOL-MYERS SQUIBB COMPANY-14104392

PATIENT
  Age: 29 Year
  Sex: Female

DRUGS (1)
  1. KENALOG [Suspect]
     Dates: start: 20071001

REACTIONS (1)
  - LIPOATROPHY [None]
